FAERS Safety Report 12424928 (Version 1)
Quarter: 2016Q2

REPORT INFORMATION
  Report Type: Spontaneous
  Country: US (occurrence: None)
  Receive Date: 20160531
  Receipt Date: 20160531
  Transmission Date: 20160815
  Serious: Yes (Other)
  Sender: FDA-Public Use
  Company Number: None

PATIENT
  Age: 66 Year
  Sex: Male
  Weight: 70.4 kg

DRUGS (1)
  1. ADENOSINE. [Suspect]
     Active Substance: ADENOSINE
     Indication: FRACTIONAL FLOW RESERVE
     Route: 042
     Dates: start: 20160512, end: 20160512

REACTIONS (3)
  - Chronic obstructive pulmonary disease [None]
  - Dyspnoea [None]
  - Wheezing [None]

NARRATIVE: CASE EVENT DATE: 20160512
